FAERS Safety Report 7801460-6 (Version None)
Quarter: 2011Q4

REPORT INFORMATION
  Report Type: 
  Country: None (occurrence: None)
  Receive Date: 20111006
  Receipt Date: 20111006
  Transmission Date: 20120403
  Serious: Yes (Hospitalization)
  Sender: FDA-Public Use
  Company Number: None

PATIENT
  Age: 87 Year
  Sex: Female
  Weight: 74.3 kg

DRUGS (5)
  1. COUMADIN [Suspect]
     Indication: ATRIAL FIBRILLATION
     Dosage: 4 MG QDAY PO CHRONIC
     Route: 048
  2. LOTENSIN [Concomitant]
  3. ESOMEPRAZOLE SODIUM [Suspect]
     Indication: GASTROOESOPHAGEAL REFLUX DISEASE
     Dosage: 40 MG DAILY PO CHRONIC
     Route: 048
  4. NEXIUM [Concomitant]
  5. TOPROL-XL [Concomitant]

REACTIONS (5)
  - INTERNATIONAL NORMALISED RATIO INCREASED [None]
  - ECCHYMOSIS [None]
  - ASTHENIA [None]
  - MALAISE [None]
  - HAEMATOMA [None]
